FAERS Safety Report 12441548 (Version 1)
Quarter: 2016Q2

REPORT INFORMATION
  Report Type: Spontaneous
  Country: US (occurrence: US)
  Receive Date: 20160607
  Receipt Date: 20160607
  Transmission Date: 20160815
  Serious: Yes (Hospitalization)
  Sender: FDA-Public Use
  Company Number: US-ALKEM-001671

PATIENT
  Age: 69 Year
  Sex: Female

DRUGS (2)
  1. ATENOLOL/ATENOLOL HYDROCHLORIDE [Suspect]
     Active Substance: ATENOLOL HYDROCHLORIDE
     Dosage: RECEIVED MULTIPLE PILLS
  2. AMLODIPINE [Suspect]
     Active Substance: AMLODIPINE BESYLATE
     Dosage: RECEIVED MULTIPLE PILLS

REACTIONS (6)
  - Shock [Recovered/Resolved]
  - Overdose [Unknown]
  - Vomiting [Unknown]
  - Cardiac arrest [Recovered/Resolved]
  - Suicide attempt [Unknown]
  - Hypokalaemia [Recovered/Resolved]
